FAERS Safety Report 9687587 (Version 1)
Quarter: 2013Q4

REPORT INFORMATION
  Report Type: Spontaneous
  Country: US (occurrence: None)
  Receive Date: 20131112
  Receipt Date: 20131112
  Transmission Date: 20140711
  Serious: Yes (Other)
  Sender: FDA-Public Use
  Company Number: 2013SA114194

PATIENT
  Age: 43 Year
  Sex: Female

DRUGS (1)
  1. ICY HOT CREAM / UNKNOWN / UNKNOWN [Suspect]
     Indication: MYALGIA
     Dates: start: 20131010

REACTIONS (1)
  - Application site burn [None]
